FAERS Safety Report 24646931 (Version 1)
Quarter: 2024Q4

REPORT INFORMATION
  Report Type: Spontaneous
  Country: DK (occurrence: DK)
  Receive Date: 20241121
  Receipt Date: 20241121
  Transmission Date: 20250115
  Serious: Yes (Hospitalization)
  Sender: RANBAXY
  Company Number: DK-SUN PHARMACEUTICAL INDUSTRIES LTD-2024RR-479399

PATIENT
  Age: 42 Year

DRUGS (1)
  1. GANIRELIX [Suspect]
     Active Substance: GANIRELIX
     Indication: Infertility
     Dosage: UNK
     Route: 058

REACTIONS (4)
  - Nausea [Recovering/Resolving]
  - Diarrhoea [Recovering/Resolving]
  - Palpitations [Recovering/Resolving]
  - Discomfort [Recovering/Resolving]

NARRATIVE: CASE EVENT DATE: 20241001
